FAERS Safety Report 5501783-X (Version None)
Quarter: 2007Q4

REPORT INFORMATION
  Report Type: 
  Country: None (occurrence: None)
  Receive Date: 20071030
  Receipt Date: 20071026
  Transmission Date: 20080405
  Serious: Yes (Death)
  Sender: FDA-Public Use
  Company Number: PHEH2007US14037

PATIENT

DRUGS (1)
  1. TRILEPTAL [Suspect]
     Dosage: UNK, UNK

REACTIONS (1)
  - DEATH [None]
